FAERS Safety Report 9795927 (Version 1)
Quarter: 2014Q1

REPORT INFORMATION
  Report Type: Spontaneous
  Country: US (occurrence: US)
  Receive Date: 20140103
  Receipt Date: 20140103
  Transmission Date: 20141002
  Serious: No
  Sender: FDA-Public Use
  Company Number: US-009507513-1312USA012065

PATIENT
  Sex: Male

DRUGS (5)
  1. SAPHRIS [Suspect]
     Indication: BIPOLAR DISORDER
     Dosage: 10 MG TWICE DAILY
     Route: 060
     Dates: start: 20101201
  2. ZOCOR [Concomitant]
  3. CLONAZEPAM [Concomitant]
  4. CYMBALTA [Concomitant]
  5. TRAZODONE HYDROCHLORIDE [Concomitant]

REACTIONS (1)
  - Dental caries [Not Recovered/Not Resolved]
